FAERS Safety Report 10342875 (Version 1)
Quarter: 2014Q3

REPORT INFORMATION
  Report Type: Spontaneous
  Country: US (occurrence: US)
  Receive Date: 20140725
  Receipt Date: 20140725
  Transmission Date: 20150326
  Serious: Yes (Other)
  Sender: FDA-Public Use
  Company Number: US-ACTAVIS-2014-15877

PATIENT
  Age: 23 Year
  Sex: Female

DRUGS (7)
  1. FAMOTIDINE. [Concomitant]
     Active Substance: FAMOTIDINE
     Indication: GASTROINTESTINAL DISORDER
     Dosage: 20 MG, BID
     Route: 048
     Dates: start: 2012
  2. LORATADINE. [Concomitant]
     Active Substance: LORATADINE
     Indication: ANTIALLERGIC THERAPY
     Dosage: 10 MG, DAILY
     Route: 048
     Dates: start: 2012
  3. PROPRANOLOL [Concomitant]
     Active Substance: PROPRANOLOL\PROPRANOLOL HYDROCHLORIDE
     Indication: CONVULSION
     Dosage: 20 MG 5 TIMES
     Route: 048
     Dates: start: 2012
  4. AMANTADINE [Concomitant]
     Active Substance: AMANTADINE
     Indication: CONVULSION
     Dosage: 50MG/5ML, 10 ML, BID
     Route: 048
     Dates: start: 201109
  5. LEVETIRACTAM [Suspect]
     Active Substance: LEVETIRACETAM
     Indication: CONVULSION
     Dosage: 15 ML, BID
     Route: 048
     Dates: start: 20140321, end: 20140403
  6. DIPHENHYDRAMINE [Concomitant]
     Active Substance: DIPHENHYDRAMINE
     Indication: INSOMNIA
     Dosage: 25 MG, QHS
     Route: 048
     Dates: start: 2012
  7. METHYLPHENIDATE [Concomitant]
     Active Substance: METHYLPHENIDATE
     Indication: CONVULSION
     Dosage: 10 MG, DAILY
     Route: 048
     Dates: start: 2011

REACTIONS (3)
  - Convulsion [Recovered/Resolved]
  - Anticonvulsant drug level below therapeutic [Recovered/Resolved]
  - Drug ineffective [Recovered/Resolved]

NARRATIVE: CASE EVENT DATE: 201403
